FAERS Safety Report 25640842 (Version 1)
Quarter: 2025Q3

REPORT INFORMATION
  Report Type: Spontaneous
  Country: EU (occurrence: EU)
  Receive Date: 20250804
  Receipt Date: 20250804
  Transmission Date: 20251020
  Serious: Yes (Hospitalization)
  Sender: MYLAN
  Company Number: None

PATIENT
  Age: 54 Year
  Sex: Female
  Weight: 66 kg

DRUGS (8)
  1. LANSOPRAZOLE [Suspect]
     Active Substance: LANSOPRAZOLE
     Indication: Prophylaxis against gastrointestinal ulcer
     Dosage: 15 MILLIGRAM,QD,(15 MG/D)
  2. LANSOPRAZOLE [Suspect]
     Active Substance: LANSOPRAZOLE
     Dosage: 15 MILLIGRAM,QD,(15 MG/D)
     Route: 048
  3. LANSOPRAZOLE [Suspect]
     Active Substance: LANSOPRAZOLE
     Dosage: 15 MILLIGRAM,QD,(15 MG/D)
     Route: 048
  4. LANSOPRAZOLE [Suspect]
     Active Substance: LANSOPRAZOLE
     Dosage: 15 MILLIGRAM,QD,(15 MG/D)
  5. BRAFTOVI [Suspect]
     Active Substance: ENCORAFENIB
     Indication: Erdheim-Chester disease
     Dosage: 75 MILLIGRAM,BID,(75 MG/TWICE PER DAY)
     Dates: start: 202112
  6. BRAFTOVI [Suspect]
     Active Substance: ENCORAFENIB
     Dosage: 75 MILLIGRAM,BID,(75 MG/TWICE PER DAY)
     Route: 048
     Dates: start: 202112
  7. BRAFTOVI [Suspect]
     Active Substance: ENCORAFENIB
     Dosage: 75 MILLIGRAM,BID,(75 MG/TWICE PER DAY)
     Route: 048
     Dates: start: 202112
  8. BRAFTOVI [Suspect]
     Active Substance: ENCORAFENIB
     Dosage: 75 MILLIGRAM,BID,(75 MG/TWICE PER DAY)
     Dates: start: 202112

REACTIONS (1)
  - Diverticulitis [Not Recovered/Not Resolved]

NARRATIVE: CASE EVENT DATE: 20250618
